FAERS Safety Report 8485346 (Version 3)
Quarter: 2012Q4

REPORT INFORMATION
  Report Type: Report from Study
  Country: US (occurrence: US)
  Receive Date: 20120330
  Receipt Date: 20121001
  Transmission Date: 20130627
  Serious: Yes (Other)
  Sender: FDA-Public Use
  Company Number: US-PFIZER INC-2011282432

PATIENT
  Sex: Female

DRUGS (3)
  1. DETROL LA [Suspect]
     Indication: HYPERTONIC BLADDER
     Dosage: 4 mg, UNK
     Route: 048
  2. TOVIAZ [Suspect]
     Dosage: UNK
  3. OXYBUTYNIN [Concomitant]
     Dosage: UNK

REACTIONS (20)
  - Kidney infection [Unknown]
  - Nephrolithiasis [Unknown]
  - Product quality issue [Unknown]
  - Drug ineffective [Unknown]
  - Nasal dryness [Unknown]
  - Nasal discomfort [Unknown]
  - Speech disorder [Unknown]
  - Throat irritation [Unknown]
  - Dry throat [Unknown]
  - Dyspnoea [Unknown]
  - Dry mouth [Unknown]
  - Lip dry [Unknown]
  - Oral pain [Unknown]
  - Dehydration [Unknown]
  - Vulvovaginal dryness [Unknown]
  - Abdominal pain upper [Unknown]
  - Oesophageal pain [Unknown]
  - Drug ineffective [Unknown]
  - Food intolerance [Unknown]
  - Drug dispensing error [Unknown]
